FAERS Safety Report 7550916-2 (Version None)
Quarter: 2011Q2

REPORT INFORMATION
  Report Type: 
  Country: None (occurrence: None)
  Receive Date: 20110609
  Receipt Date: 20110525
  Transmission Date: 20111010
  Serious: Yes (Other)
  Sender: FDA-Public Use
  Company Number: AUR-APL-2011-02178

PATIENT
  Age: 85 Year
  Sex: Female
  Weight: 73 kg

DRUGS (6)
  1. SYNTHROID [Concomitant]
  2. AMIODARONE HCL [Suspect]
  3. LISINOPRIL [Suspect]
  4. PREDNISONE [Concomitant]
  5. PLAVIX [Suspect]
     Indication: ATRIAL FIBRILLATION
     Dosage: 75MG-DAILY
     Dates: start: 20100101
  6. AMLODIPINE BESYLATE [Suspect]

REACTIONS (5)
  - MALAISE [None]
  - FEELING ABNORMAL [None]
  - FEELING HOT [None]
  - HYPERHIDROSIS [None]
  - MENTAL IMPAIRMENT [None]
